FAERS Safety Report 10104726 (Version 3)
Quarter: 2015Q1

REPORT INFORMATION
  Report Type: Other
  Country: None (occurrence: US)
  Receive Date: 20140424
  Receipt Date: 20150316
  Transmission Date: 20150720
  Serious: Yes (Hospitalization, Other)
  Sender: FDA-Public Use
  Company Number: US-GSKPPD-2014GSK003665

PATIENT
  Age: 69 Year
  Sex: Male

DRUGS (3)
  1. BISOPROLOL AND HYDROCHLOROTHIAZIDE [Concomitant]
     Dosage: 10 MG / 6.25 MG
  2. AVANDIA [Suspect]
     Active Substance: ROSIGLITAZONE MALEATE
     Indication: DIABETES MELLITUS
     Route: 048
     Dates: start: 2006, end: 2010
  3. HEPARIN [Concomitant]
     Active Substance: HEPARIN SODIUM
     Route: 042

REACTIONS (1)
  - Myocardial infarction [Recovered/Resolved]

NARRATIVE: CASE EVENT DATE: 20101002
